FAERS Safety Report 5165136-9 (Version None)
Quarter: 2006Q4

REPORT INFORMATION
  Report Type: 
  Country: None (occurrence: None)
  Receive Date: 20061124
  Receipt Date: 20061117
  Transmission Date: 20070319
  Serious: Yes (Life-Threatening, Hospitalization)
  Sender: FDA-Public Use
  Company Number: 2006PV023037

PATIENT
  Age: 61 Year
  Sex: Female

DRUGS (7)
  1. BYETTA [Suspect]
     Indication: DIABETES MELLITUS NON-INSULIN-DEPENDENT
     Dosage: SEE IMAGE, SC
     Route: 058
     Dates: start: 20051101, end: 20051201
  2. BYETTA [Suspect]
     Indication: DIABETES MELLITUS NON-INSULIN-DEPENDENT
     Dosage: SEE IMAGE, SC
     Route: 058
     Dates: start: 20051201
  3. GLUCOSAMINE W/CHONDROITIN SULFATE) [Suspect]
     Indication: ARTHROPATHY
  4. CALCIUM SULFATE [Suspect]
     Indication: DRUG USE FOR UNKNOWN INDICATION
  5. HYDROCHLOROTHIAZIDE [Suspect]
     Indication: DRUG USE FOR UNKNOWN INDICATION
  6. UNSPECIFIED ANTI-HYPERTENSIVES [Concomitant]
  7. SYNTHROID [Concomitant]

REACTIONS (9)
  - ANAPHYLACTIC REACTION [None]
  - ANXIETY [None]
  - BRONCHOSPASM [None]
  - CARDIAC DISORDER [None]
  - EXCORIATION [None]
  - FALL [None]
  - HYPERGLYCAEMIA [None]
  - NON-CARDIAC CHEST PAIN [None]
  - PYREXIA [None]
